FAERS Safety Report 16462741 (Version 1)
Quarter: 2019Q2

REPORT INFORMATION
  Report Type: Spontaneous
  Country: US (occurrence: US)
  Receive Date: 20190511
  Receipt Date: 20190511
  Transmission Date: 20190711
  Serious: No
  Sender: FDA-Public Use
  Company Number: None

PATIENT
  Age: 54 Year
  Sex: Female

DRUGS (1)
  1. OLUMIANT [Suspect]
     Active Substance: BARICITINIB
     Dates: start: 201805

REACTIONS (3)
  - Rheumatoid arthritis [None]
  - Therapy cessation [None]
  - Symptom recurrence [None]

NARRATIVE: CASE EVENT DATE: 20190511
